FAERS Safety Report 9803661 (Version 1)
Quarter: 2014Q1

REPORT INFORMATION
  Report Type: Spontaneous
  Country: US (occurrence: US)
  Receive Date: 20140108
  Receipt Date: 20140108
  Transmission Date: 20141002
  Serious: No
  Sender: FDA-Public Use
  Company Number: US-GLAXOSMITHKLINE-A1020964A

PATIENT
  Age: 69 Year
  Sex: Female

DRUGS (6)
  1. LOVAZA [Suspect]
     Dosage: 1TAB TWICE PER DAY
     Route: 048
     Dates: start: 20130419
  2. LEVOTHYROXINE [Concomitant]
  3. METOPROLOL [Concomitant]
  4. VITAMIN B [Concomitant]
  5. LISINOPRIL [Concomitant]
  6. GARLIC PILLS [Concomitant]

REACTIONS (1)
  - Diarrhoea [Not Recovered/Not Resolved]
